FAERS Safety Report 14410386 (Version 1)
Quarter: 2018Q1

REPORT INFORMATION
  Report Type: Spontaneous
  Country: US (occurrence: US)
  Receive Date: 20180119
  Receipt Date: 20180119
  Transmission Date: 20180509
  Serious: Yes (Other)
  Sender: FDA-Public Use
  Company Number: US-ASTELLAS-2017US049221

PATIENT
  Age: 73 Year
  Sex: Female

DRUGS (1)
  1. MYRBETRIQ [Suspect]
     Active Substance: MIRABEGRON
     Indication: HYPERTONIC BLADDER
     Dosage: 50 MG, OTHER (3 OR 4 PILLS PER WEEK)
     Route: 048
     Dates: start: 2016, end: 201712

REACTIONS (4)
  - Appendicitis perforated [Unknown]
  - Weight decreased [Unknown]
  - Intentional product misuse [Unknown]
  - Inappropriate schedule of drug administration [Unknown]

NARRATIVE: CASE EVENT DATE: 201712
